FAERS Safety Report 20974674 (Version 1)
Quarter: 2022Q2

REPORT INFORMATION
  Report Type: Spontaneous
  Country: US (occurrence: None)
  Receive Date: 20220616
  Receipt Date: 20220616
  Transmission Date: 20220721
  Serious: Yes (Hospitalization)
  Sender: FDA-Public Use
  Company Number: None

PATIENT
  Age: 82 Year
  Sex: Male
  Weight: 74.25 kg

DRUGS (10)
  1. LENALIDOMIDE [Suspect]
     Active Substance: LENALIDOMIDE
     Indication: Plasma cell myeloma
     Dosage: FREQUENCY : DAILY;?
     Route: 048
  2. ATORVASTATIN [Concomitant]
     Active Substance: ATORVASTATIN
  3. ZINC [Concomitant]
     Active Substance: ZINC
  4. TERAZOSIN [Concomitant]
     Active Substance: TERAZOSIN HYDROCHLORIDE
  5. CALCITRIOL [Concomitant]
     Active Substance: CALCITRIOL
  6. LOSARTAN [Concomitant]
     Active Substance: LOSARTAN
  7. PROTONIX [Concomitant]
     Active Substance: PANTOPRAZOLE SODIUM
  8. DECADRON [Concomitant]
     Active Substance: DEXAMETHASONE
  9. VITAMIN D [Concomitant]
     Active Substance: VITAMIN D NOS
  10. ELIQUIS [Concomitant]
     Active Substance: APIXABAN

REACTIONS (2)
  - Therapy interrupted [None]
  - Lung neoplasm malignant [None]

NARRATIVE: CASE EVENT DATE: 20220613
